FAERS Safety Report 21139157 (Version 2)
Quarter: 2022Q3

REPORT INFORMATION
  Report Type: Spontaneous
  Country: IT (occurrence: IT)
  Receive Date: 20220727
  Receipt Date: 20220802
  Transmission Date: 20221027
  Serious: Yes (Hospitalization, Other)
  Sender: FDA-Public Use
  Company Number: None

PATIENT
  Age: 7 Year
  Sex: Male

DRUGS (2)
  1. ABILIFY [Suspect]
     Active Substance: ARIPIPRAZOLE
     Indication: Attention deficit hyperactivity disorder
     Dosage: TOTAL 5 MG (1/2 + 1/2 TABLET TOTAL OF 5 MG PER DAY)
     Route: 048
     Dates: start: 20220623, end: 20220623
  2. PERICIAZINE [Suspect]
     Active Substance: PERICIAZINE
     Indication: Attention deficit hyperactivity disorder
     Dosage: 20 MG, EVERY 24 HOURS (1/2 TABLET + 1/2 TABLET + 1TABLET PER DAY (5+5+10 MG PER DAY)
     Route: 048
     Dates: start: 20220623, end: 20220625

REACTIONS (3)
  - Depressed level of consciousness [Recovered/Resolved]
  - Product use in unapproved indication [Unknown]
  - Wrong technique in product usage process [Unknown]

NARRATIVE: CASE EVENT DATE: 20220623
